FAERS Safety Report 18266561 (Version 1)
Quarter: 2020Q3

REPORT INFORMATION
  Report Type: Report from Study
  Country: NL (occurrence: NL)
  Receive Date: 20200915
  Receipt Date: 20200915
  Transmission Date: 20201103
  Serious: Yes (Death, Hospitalization)
  Sender: FDA-Public Use
  Company Number: NVSC2020NL250258

PATIENT
  Age: 74 Year
  Sex: Female

DRUGS (1)
  1. TRAMETINIB [Suspect]
     Active Substance: TRAMETINIB
     Indication: NON-SMALL CELL LUNG CANCER
     Dosage: 1.5 MG, QD
     Route: 048
     Dates: start: 20200317, end: 20200906

REACTIONS (1)
  - Abdominal sepsis [Fatal]

NARRATIVE: CASE EVENT DATE: 20200907
